FAERS Safety Report 12403697 (Version 2)
Quarter: 2016Q2

REPORT INFORMATION
  Report Type: Spontaneous
  Country: JP (occurrence: JP)
  Receive Date: 20160525
  Receipt Date: 20160621
  Transmission Date: 20160815
  Serious: Yes (Other)
  Sender: FDA-Public Use
  Company Number: JP-BAUSCH-BL-2016-012081

PATIENT
  Age: 54 Year
  Sex: Female

DRUGS (3)
  1. VISUDYNE [Suspect]
     Active Substance: VERTEPORFIN
     Indication: AGE-RELATED MACULAR DEGENERATION
     Route: 042
  2. TRIAMCINOLONE ACETONIDE. [Suspect]
     Active Substance: TRIAMCINOLONE ACETONIDE
     Indication: AGE-RELATED MACULAR DEGENERATION
     Route: 065
  3. LUCENTIS [Suspect]
     Active Substance: RANIBIZUMAB
     Indication: AGE-RELATED MACULAR DEGENERATION
     Dosage: THREE TIMES (THE LAST DOSE WAS GIVEN TWO MONTHS BEFORE)
     Route: 047

REACTIONS (1)
  - Age-related macular degeneration [Unknown]

NARRATIVE: CASE EVENT DATE: 201103
